FAERS Safety Report 16039101 (Version 2)
Quarter: 2019Q1

REPORT INFORMATION
  Report Type: Spontaneous
  Country: SG (occurrence: SG)
  Receive Date: 20190306
  Receipt Date: 20190322
  Transmission Date: 20190418
  Serious: Yes (Other)
  Sender: FDA-Public Use
  Company Number: SG-ASTRAZENECA-2019SE35485

PATIENT
  Sex: Female
  Weight: 60 kg

DRUGS (1)
  1. SYMBICORT [Suspect]
     Active Substance: BUDESONIDE\FORMOTEROL FUMARATE DIHYDRATE
     Dosage: 2 PUFFS UNKNOWN UNKNOWN
     Route: 055

REACTIONS (8)
  - Device use issue [Unknown]
  - Dyspnoea [Unknown]
  - Sleep deficit [Unknown]
  - Wrong technique in device usage process [Unknown]
  - Circumstance or information capable of leading to medication error [Unknown]
  - Fatigue [Unknown]
  - Palpitations [Unknown]
  - Anxiety [Unknown]
